FAERS Safety Report 25778141 (Version 1)
Quarter: 2025Q3

REPORT INFORMATION
  Report Type: Spontaneous
  Country: US (occurrence: None)
  Receive Date: 20250907
  Receipt Date: 20250907
  Transmission Date: 20251021
  Serious: Yes (Hospitalization)
  Sender: FDA-CTU
  Company Number: None

PATIENT
  Age: 40 Year
  Sex: Female
  Weight: 63 kg

DRUGS (1)
  1. SERTRALINE [Suspect]
     Active Substance: SERTRALINE HYDROCHLORIDE
     Indication: Premenstrual dysphoric disorder
     Dates: start: 20230510, end: 20230514

REACTIONS (6)
  - Akathisia [None]
  - Depression [None]
  - Paranoia [None]
  - Depersonalisation/derealisation disorder [None]
  - Insomnia [None]
  - Psychotic disorder [None]

NARRATIVE: CASE EVENT DATE: 20230524
